FAERS Safety Report 16158923 (Version 2)
Quarter: 2019Q2

REPORT INFORMATION
  Report Type: Spontaneous
  Country: US (occurrence: US)
  Receive Date: 20190404
  Receipt Date: 20190405
  Transmission Date: 20190711
  Serious: No
  Sender: FDA-Public Use
  Company Number: US-BAYER-2019-065949

PATIENT
  Age: 20 Year
  Sex: Female

DRUGS (7)
  1. LINZESS [Suspect]
     Active Substance: LINACLOTIDE
     Indication: CONSTIPATION
     Dosage: 290 ?G/ML
     Route: 048
     Dates: start: 20181128
  2. MIRALAX [Suspect]
     Active Substance: POLYETHYLENE GLYCOL 3350
     Indication: CONSTIPATION
     Dosage: UNK
  3. LINZESS [Suspect]
     Active Substance: LINACLOTIDE
     Indication: CONSTIPATION
     Dosage: 72 ?G/ML
  4. GAVILYTE - C [Concomitant]
     Active Substance: POLYETHYLENE GLYCOL 3350\POTASSIUM CHLORIDE\SODIUM BICARBONATE\SODIUM CHLORIDE\SODIUM SULFATE ANHYDROUS
     Indication: CONSTIPATION
  5. PHILLIPS ORIGINAL MILK OF MAGNESIA [Suspect]
     Active Substance: MAGNESIUM HYDROXIDE
     Dosage: UNK
  6. LINZESS [Suspect]
     Active Substance: LINACLOTIDE
     Indication: IRRITABLE BOWEL SYNDROME
     Dosage: 145 ?G/ML
  7. BIOTIN [Concomitant]
     Active Substance: BIOTIN

REACTIONS (18)
  - Abdominal distension [Unknown]
  - Diarrhoea [Unknown]
  - Increased tendency to bruise [Recovered/Resolved]
  - Hypoaesthesia [Recovered/Resolved]
  - Paraesthesia [Recovered/Resolved]
  - Confusional state [None]
  - Constipation [None]
  - Thirst [Unknown]
  - Eye irritation [Unknown]
  - Arthralgia [Recovered/Resolved]
  - Palpitations [Unknown]
  - Abdominal pain [Unknown]
  - Chromaturia [Recovered/Resolved]
  - Nausea [Recovered/Resolved]
  - Amnesia [None]
  - Flatulence [Unknown]
  - Drug ineffective [None]
  - Oedema peripheral [Unknown]
